FAERS Safety Report 15018904 (Version 1)
Quarter: 2018Q2

REPORT INFORMATION
  Report Type: Spontaneous
  Country: TR (occurrence: TR)
  Receive Date: 20180616
  Receipt Date: 20180616
  Transmission Date: 20180711
  Serious: Yes (Hospitalization, Other)
  Sender: FDA-Public Use
  Company Number: TR-AMGEN-TURSP2018069843

PATIENT
  Age: 10 Year
  Sex: Female
  Weight: 41 kg

DRUGS (2)
  1. ENBREL [Suspect]
     Active Substance: ETANERCEPT
     Indication: JUVENILE IDIOPATHIC ARTHRITIS
     Dosage: 0.8 MG/KG, WEEKLY (32 MG/WEEKLY)
     Route: 058
     Dates: start: 201801, end: 20180409
  2. METHOTREXATE SODIUM. [Interacting]
     Active Substance: METHOTREXATE SODIUM
     Indication: PRODUCT USED FOR UNKNOWN INDICATION
     Dosage: 15 MG/M2, QWK
     Route: 048

REACTIONS (2)
  - Drug interaction [Recovered/Resolved]
  - Herpes zoster [Recovered/Resolved]

NARRATIVE: CASE EVENT DATE: 20180409
